FAERS Safety Report 18416185 (Version 2)
Quarter: 2020Q4

REPORT INFORMATION
  Report Type: Spontaneous
  Country: CA (occurrence: CA)
  Receive Date: 20201022
  Receipt Date: 20201029
  Transmission Date: 20210114
  Serious: Yes (Death, Hospitalization, Other)
  Sender: FDA-Public Use
  Company Number: CA-PFIZER INC-GBR004398

PATIENT
  Age: 72 Year
  Sex: Female

DRUGS (7)
  1. VERAPAMIL HCL [Suspect]
     Active Substance: VERAPAMIL HYDROCHLORIDE
     Dosage: 10 DF (INGESTED 10 OF HER HUSBAND^S 240-MG SUSTAINEDRELEASE VERAPAMIL TABLETS)
     Route: 048
  2. TEMAZEPAM. [Concomitant]
     Active Substance: TEMAZEPAM
     Indication: ANXIETY
     Dosage: UNK, AS NEEDED (15-30 MG, AT NIGHT)
     Dates: start: 1997
  3. OLANZAPINE. [Suspect]
     Active Substance: OLANZAPINE
     Indication: COGNITIVE DISORDER
     Dosage: 5 MG, DAILY
  4. TEMAZEPAM. [Concomitant]
     Active Substance: TEMAZEPAM
     Indication: INSOMNIA
  5. MORPHINE SULFATE. [Concomitant]
     Active Substance: MORPHINE SULFATE
     Indication: PAIN
     Dosage: 30 MG, 2X/DAY (TAKEN FOR SEVERAL YEARS)
  6. KETOROLAC [Concomitant]
     Active Substance: KETOROLAC TROMETHAMINE
     Indication: PAIN
     Dosage: 10 MG, 4X/DAY (AS NEEDED)
     Route: 048
  7. ACETAMINOPHEN. [Concomitant]
     Active Substance: ACETAMINOPHEN
     Dosage: UNK

REACTIONS (6)
  - Hypotension [Recovered/Resolved]
  - Pancreatitis haemorrhagic [Fatal]
  - Anuria [Recovered/Resolved]
  - Accidental overdose [Fatal]
  - Pancreatitis acute [Fatal]
  - Bradycardia [Recovered/Resolved]
